FAERS Safety Report 10547280 (Version 1)
Quarter: 2014Q4

REPORT INFORMATION
  Report Type: Report from Study
  Country: US (occurrence: US)
  Receive Date: 20141028
  Receipt Date: 20141028
  Transmission Date: 20150529
  Serious: Yes (Other)
  Sender: FDA-Public Use
  Company Number: US-AMGEN-USASL2014082345

PATIENT
  Age: 62 Year
  Sex: Female

DRUGS (2)
  1. ENBREL [Suspect]
     Active Substance: ETANERCEPT
     Indication: RHEUMATOID ARTHRITIS
     Dosage: 50 MG, QWK
     Route: 065
     Dates: start: 20140815
  2. METHOTREXATE [Concomitant]
     Active Substance: METHOTREXATE
     Dosage: UNK UNK, QWK

REACTIONS (7)
  - Injection site pruritus [Not Recovered/Not Resolved]
  - Pulmonary congestion [Not Recovered/Not Resolved]
  - Injection site urticaria [Not Recovered/Not Resolved]
  - Rhinorrhoea [Not Recovered/Not Resolved]
  - Cough [Not Recovered/Not Resolved]
  - Throat irritation [Not Recovered/Not Resolved]
  - Head discomfort [Not Recovered/Not Resolved]

NARRATIVE: CASE EVENT DATE: 201408
